FAERS Safety Report 14583304 (Version 1)
Quarter: 2018Q1

REPORT INFORMATION
  Report Type: Spontaneous
  Country: US (occurrence: US)
  Receive Date: 20180228
  Receipt Date: 20180228
  Transmission Date: 20180509
  Serious: Yes (Hospitalization, Other)
  Sender: FDA-Public Use
  Company Number: US-BAYER-2018-038671

PATIENT
  Age: 95 Year
  Sex: Male

DRUGS (3)
  1. WARFARIN [Interacting]
     Active Substance: WARFARIN
  2. CLOPIDOGREL [Interacting]
     Active Substance: CLOPIDOGREL BISULFATE
     Indication: CARDIOVASCULAR DISORDER
  3. ACETYLSALICYLIC ACID({=100 MG) [Suspect]
     Active Substance: ASPIRIN
     Indication: CARDIOVASCULAR DISORDER
     Dosage: UNK

REACTIONS (4)
  - Drug administration error [None]
  - Haematuria [None]
  - Labelled drug-drug interaction medication error [None]
  - Anaemia [None]
